FAERS Safety Report 5087820-8 (Version None)
Quarter: 2006Q3

REPORT INFORMATION
  Report Type: 
  Country: None (occurrence: None)
  Receive Date: 20060824
  Receipt Date: 20060815
  Transmission Date: 20061208
  Serious: Yes (Other)
  Sender: FDA-Public Use
  Company Number: BR-SANOFI-SYNTHELABO-A01200606624

PATIENT
  Sex: Female
  Weight: 50 kg

DRUGS (6)
  1. CLORANA [Concomitant]
     Indication: DIURETIC THERAPY
     Dosage: UNK
     Route: 048
  2. PROPRANOLOL [Concomitant]
     Indication: HYPERTENSION
     Dosage: UNK
     Route: 065
  3. CAPOTEN [Concomitant]
     Indication: HYPERTENSION
     Dosage: UNK
     Route: 065
  4. ACETAMINOPHEN W/ CODEINE [Concomitant]
     Indication: HEPATIC NEOPLASM MALIGNANT
     Dosage: UNK
     Route: 048
  5. STILNOX [Suspect]
     Indication: INSOMNIA
     Route: 048
     Dates: start: 20060814, end: 20060814
  6. KENERON [Concomitant]
     Indication: DRUG USE FOR UNKNOWN INDICATION
     Dosage: UNK
     Route: 048

REACTIONS (3)
  - AMNESIA [None]
  - CONFUSIONAL STATE [None]
  - DELIRIUM [None]
